FAERS Safety Report 15777640 (Version 8)
Quarter: 2019Q4

REPORT INFORMATION
  Report Type: Report from Study
  Country: US (occurrence: US)
  Receive Date: 20181231
  Receipt Date: 20191230
  Transmission Date: 20200122
  Serious: Yes (Other)
  Sender: FDA-Public Use
  Company Number: US-CLOVIS ONCOLOGY-CLO-2018-001869

PATIENT
  Age: 59 Year
  Sex: Female

DRUGS (12)
  1. RUBRACA [Suspect]
     Active Substance: RUCAPARIB CAMSYLATE
     Dosage: 300 MG DAILY/200 MG DAILY
     Dates: start: 20181108
  2. PLAQUENIL [Concomitant]
     Active Substance: HYDROXYCHLOROQUINE SULFATE
     Indication: SJOGREN^S SYNDROME
  3. RUBRACA [Suspect]
     Active Substance: RUCAPARIB CAMSYLATE
     Indication: OVARIAN CANCER
     Dosage: 600 MG, BID
     Route: 048
     Dates: start: 20181129, end: 20181227
  4. RUBRACA [Suspect]
     Active Substance: RUCAPARIB CAMSYLATE
     Dosage: 500 MG, BID
     Route: 048
     Dates: start: 20190220, end: 201902
  5. RUBRACA [Suspect]
     Active Substance: RUCAPARIB CAMSYLATE
     Dosage: 500 MG, QD
     Route: 048
     Dates: start: 20190715
  6. RUBRACA [Suspect]
     Active Substance: RUCAPARIB CAMSYLATE
     Dosage: 300 MG IN AM/200 MG IN PM
     Dates: start: 20190715, end: 201908
  7. RUBRACA [Suspect]
     Active Substance: RUCAPARIB CAMSYLATE
     Dosage: 500 MG, BID
     Dates: end: 20190619
  8. RUBRACA [Suspect]
     Active Substance: RUCAPARIB CAMSYLATE
     Indication: OVARIAN CANCER
     Dosage: 600 MG, BID
     Route: 048
     Dates: start: 20181108, end: 20181227
  9. RUBRACA [Suspect]
     Active Substance: RUCAPARIB CAMSYLATE
     Dosage: 600 MG, BID
     Dates: start: 201812
  10. RUBRACA [Suspect]
     Active Substance: RUCAPARIB CAMSYLATE
     Dosage: 300 MG, BID
     Route: 048
     Dates: start: 20190524, end: 2019
  11. RUBRACA [Suspect]
     Active Substance: RUCAPARIB CAMSYLATE
     Dosage: 500 MG, BID
     Route: 048
     Dates: start: 20190228, end: 20190314
  12. RUBRACA [Suspect]
     Active Substance: RUCAPARIB CAMSYLATE
     Dosage: 400 MG, BID
     Route: 048
     Dates: start: 20190411, end: 201904

REACTIONS (9)
  - Fatigue [Not Recovered/Not Resolved]
  - Neutrophil count decreased [Not Recovered/Not Resolved]
  - Haemoglobin decreased [Not Recovered/Not Resolved]
  - Blood count abnormal [Not Recovered/Not Resolved]
  - Platelet count decreased [Recovered/Resolved]
  - White blood cell count decreased [Unknown]
  - Dyspnoea [Not Recovered/Not Resolved]
  - Platelet count decreased [Unknown]
  - Capillary fragility [Unknown]

NARRATIVE: CASE EVENT DATE: 2018
